FAERS Safety Report 10342635 (Version 1)
Quarter: 2014Q3

REPORT INFORMATION
  Report Type: Spontaneous
  Country: US (occurrence: US)
  Receive Date: 20140725
  Receipt Date: 20140725
  Transmission Date: 20150326
  Serious: No
  Sender: FDA-Public Use
  Company Number: US-PFIZER INC-2014204371

PATIENT
  Sex: Female

DRUGS (1)
  1. IBUPROFEN. [Suspect]
     Active Substance: IBUPROFEN
     Indication: PAIN
     Dosage: UNK (6-8 TABLETS PER DAY)

REACTIONS (4)
  - Burning sensation [Unknown]
  - Gastric disorder [Unknown]
  - Dyspepsia [Unknown]
  - Overdose [Unknown]
